FAERS Safety Report 24281146 (Version 1)
Quarter: 2024Q3

REPORT INFORMATION
  Report Type: Spontaneous
  Country: CN (occurrence: CN)
  Receive Date: 20240904
  Receipt Date: 20240904
  Transmission Date: 20241016
  Serious: Yes (Other)
  Sender: MERCK
  Company Number: CN-009507513-2408CHN009734

PATIENT
  Age: 90 Year
  Sex: Female
  Weight: 39 kg

DRUGS (2)
  1. CILASTATIN SODIUM\IMIPENEM [Suspect]
     Active Substance: CILASTATIN SODIUM\IMIPENEM
     Indication: Gastroenteritis
     Dosage: 1 GRAM, Q12H
     Route: 041
     Dates: start: 20240702, end: 20240705
  2. SODIUM CHLORIDE [Concomitant]
     Active Substance: SODIUM CHLORIDE
     Indication: Medication dilution
     Dosage: 100 MILLILITER, BID
     Route: 041
     Dates: start: 20240702, end: 20240705

REACTIONS (3)
  - Depressed level of consciousness [Recovering/Resolving]
  - Disorganised speech [Recovering/Resolving]
  - Incorrect dosage administered [Unknown]

NARRATIVE: CASE EVENT DATE: 20240702
